FAERS Safety Report 20510783 (Version 1)
Quarter: 2022Q1

REPORT INFORMATION
  Report Type: Spontaneous
  Country: FR (occurrence: FR)
  Receive Date: 20220224
  Receipt Date: 20220224
  Transmission Date: 20220423
  Serious: Yes (Other)
  Sender: FDA-Public Use
  Company Number: FR-NOVARTISPH-NVSC2022FR040367

PATIENT
  Age: 50 Year
  Sex: Male
  Weight: 75 kg

DRUGS (2)
  1. CYCLOPHOSPHAMIDE [Suspect]
     Active Substance: CYCLOPHOSPHAMIDE
     Indication: Plasma cell myeloma
     Dosage: 300 MG/M2, QD
     Route: 041
     Dates: start: 20210822, end: 20210824
  2. FLUDARABINE [Suspect]
     Active Substance: FLUDARABINE PHOSPHATE
     Indication: Plasma cell myeloma
     Dosage: 30 MILLIGRAM/SQ. METER
     Route: 041
     Dates: start: 20210822, end: 20210824

REACTIONS (1)
  - Hypogammaglobulinaemia [Recovered/Resolved]

NARRATIVE: CASE EVENT DATE: 20211001
